FAERS Safety Report 17893630 (Version 3)
Quarter: 2020Q4

REPORT INFORMATION
  Report Type: Spontaneous
  Country: US (occurrence: US)
  Receive Date: 20200615
  Receipt Date: 20201201
  Transmission Date: 20210113
  Serious: No
  Sender: FDA-Public Use
  Company Number: US-GILEAD-2020-0470549

PATIENT
  Age: 42 Year
  Sex: Male

DRUGS (4)
  1. TRUVADA [Suspect]
     Active Substance: EMTRICITABINE\TENOFOVIR DISOPROXIL FUMARATE
     Indication: HIV INFECTION
     Dosage: UNK
     Route: 048
     Dates: start: 201407, end: 201703
  2. DESCOVY [Concomitant]
     Active Substance: EMTRICITABINE\TENOFOVIR ALAFENAMIDE FUMARATE
  3. COMPLERA [Suspect]
     Active Substance: EMTRICITABINE\RILPIVIRINE HYDROCHLORIDE\TENOFOVIR DISOPROXIL FUMARATE
     Indication: HIV INFECTION
     Dosage: UNK
     Route: 048
     Dates: start: 2014, end: 2014
  4. SYMTUZA [Concomitant]
     Active Substance: COBICISTAT\DARUNAVIR\EMTRICITABINE\TENOFOVIR ALAFENAMIDE

REACTIONS (2)
  - Tooth loss [Not Recovered/Not Resolved]
  - Bone density decreased [Unknown]

NARRATIVE: CASE EVENT DATE: 201703
